FAERS Safety Report 18158797 (Version 1)
Quarter: 2020Q3

REPORT INFORMATION
  Report Type: Spontaneous
  Country: GB (occurrence: GB)
  Receive Date: 20200817
  Receipt Date: 20200817
  Transmission Date: 20201103
  Serious: Yes (Disabling, Other)
  Sender: FDA-Public Use
  Company Number: GB-PFIZER INC-2020314017

PATIENT
  Age: 85 Year
  Sex: Male
  Weight: 55.25 kg

DRUGS (6)
  1. SUDOCREM [Concomitant]
     Active Substance: LANOLIN\ZINC OXIDE
     Dosage: UNK
     Dates: start: 20200527
  2. DIPROBASE [PARAFFIN, LIQUID;WHITE SOFT PARAFFIN] [Concomitant]
     Indication: DRY SKIN
     Dosage: 1 DF(APPLY EVERY DAY TO DRY AREAS OF SKIN)
     Dates: start: 20200527
  3. LORAZEPAM. [Concomitant]
     Active Substance: LORAZEPAM
     Indication: AGITATION
     Dosage: 1 MG, AS NEEDED (ONE OR TWO UP TO TWICE DAILY IF NEEDED)
     Dates: start: 20200429
  4. NUTRITION 12 [Concomitant]
     Active Substance: IRON\MINERALS\VITAMINS
     Dosage: 114 G, 1X/DAY (WILL 100?200MLS WHOLE MILK)
     Dates: start: 20200720
  5. SERTRALINE HCL [Suspect]
     Active Substance: SERTRALINE HYDROCHLORIDE
     Indication: DEPRESSION
     Dosage: 100 MG, 1X/DAY
     Route: 048
     Dates: start: 20190201, end: 20200515
  6. LANSOPRAZOLE. [Concomitant]
     Active Substance: LANSOPRAZOLE
     Dosage: 15 MG, 1X/DAY
     Dates: start: 20200720

REACTIONS (3)
  - Cognitive disorder [Recovering/Resolving]
  - Dementia [Recovering/Resolving]
  - Confusional state [Recovered/Resolved]

NARRATIVE: CASE EVENT DATE: 20200201
